FAERS Safety Report 6272143-1 (Version None)
Quarter: 2009Q3

REPORT INFORMATION
  Report Type: 
  Country: None (occurrence: None)
  Receive Date: 20090717
  Receipt Date: 20090707
  Transmission Date: 20100115
  Serious: Yes (Death, Hospitalization, Disabling)
  Sender: FDA-Public Use
  Company Number: KR-PFIZER INC-2009238260

PATIENT
  Age: 71 Year

DRUGS (1)
  1. SUNITINIB MALATE [Suspect]
     Indication: RENAL CELL CARCINOMA
     Dosage: 50 MG, 1X/DAY
     Route: 048
     Dates: start: 20081103, end: 20081223

REACTIONS (3)
  - DERMATITIS [None]
  - HYPOTHYROIDISM [None]
  - THROMBOCYTOPENIA [None]
